FAERS Safety Report 13377312 (Version 2)
Quarter: 2018Q2

REPORT INFORMATION
  Report Type: Spontaneous
  Country: GB (occurrence: GB)
  Receive Date: 20170328
  Receipt Date: 20180622
  Transmission Date: 20180711
  Serious: Yes (Hospitalization)
  Sender: FDA-Public Use
  Company Number: GB-TEVA-752446ACC

PATIENT
  Age: 45 Year
  Sex: Male
  Weight: 114 kg

DRUGS (2)
  1. NAPROXEN. [Suspect]
     Active Substance: NAPROXEN
     Dosage: 2 DOSAGE FORMS DAILY;
     Dates: start: 201702
  2. NAPROXEN. [Suspect]
     Active Substance: NAPROXEN
     Dates: start: 201507

REACTIONS (5)
  - Vomiting [Recovered/Resolved]
  - Gastrointestinal haemorrhage [Unknown]
  - Gastritis erosive [Recovered/Resolved]
  - Dizziness [Recovered/Resolved]
  - Erosive duodenitis [Recovered/Resolved]

NARRATIVE: CASE EVENT DATE: 20170305
